FAERS Safety Report 8890220 (Version 1)
Quarter: 2012Q4

REPORT INFORMATION
  Report Type: 
  Country: US (occurrence: US)
  Receive Date: 20121107
  Receipt Date: 20121107
  Transmission Date: 20130627
  Serious: No
  Sender: FDA-Public Use
  Company Number: US-009507513-1210USA013773

PATIENT
  Sex: Male

DRUGS (1)
  1. REMERON [Suspect]
     Dosage: 30 mg, UNK
     Route: 048

REACTIONS (4)
  - Haemorrhoids [Unknown]
  - Fluid retention [Unknown]
  - Gastrointestinal hypomotility [Unknown]
  - Blood pressure increased [Unknown]
